FAERS Safety Report 13193209 (Version 1)
Quarter: 2017Q1

REPORT INFORMATION
  Report Type: Spontaneous
  Country: IT (occurrence: IT)
  Receive Date: 20170207
  Receipt Date: 20170207
  Transmission Date: 20170428
  Serious: Yes (Hospitalization)
  Sender: FDA-Public Use
  Company Number: IT-SEPTODONT-201703853

PATIENT
  Sex: Female

DRUGS (1)
  1. MEPIVACAINE HYDROCHLORIDE. [Suspect]
     Active Substance: MEPIVACAINE HYDROCHLORIDE
     Indication: LOCAL ANAESTHESIA
     Dosage: UNKNOWN DOSE
     Route: 004

REACTIONS (1)
  - Clonus [Recovered/Resolved]

NARRATIVE: CASE EVENT DATE: 20170113
